FAERS Safety Report 6729823-0 (Version None)
Quarter: 2010Q2

REPORT INFORMATION
  Report Type: 
  Country: None (occurrence: None)
  Receive Date: 20100518
  Receipt Date: 20100510
  Transmission Date: 20101027
  Serious: Yes (Death, Other)
  Sender: FDA-Public Use
  Company Number: US-TEVA-234533USA

PATIENT
  Age: 48 Year
  Sex: Male

DRUGS (4)
  1. CHLORDIAZEPOXIDE HYDROCHLORIDE CAPSULE 10MG [Suspect]
  2. FLUOXETINE [Suspect]
  3. OXYMORPHONE [Suspect]
  4. ETHANOL [Suspect]

REACTIONS (3)
  - ALCOHOL POISONING [None]
  - DRUG TOXICITY [None]
  - PULMONARY CONGESTION [None]
